APPROVED DRUG PRODUCT: REVATIO
Active Ingredient: SILDENAFIL CITRATE
Strength: EQ 20MG BASE
Dosage Form/Route: TABLET;ORAL
Application: N021845 | Product #001 | TE Code: AB
Applicant: VIATRIS SPECIALTY LLC
Approved: Jun 3, 2005 | RLD: Yes | RS: Yes | Type: RX

EXCLUSIVITY:
Code: M-287 | Date: Jan 31, 2026
Code: ODE-469 | Date: Jan 31, 2030